FAERS Safety Report 17848321 (Version 4)
Quarter: 2020Q3

REPORT INFORMATION
  Report Type: Other
  Country: IT (occurrence: IT)
  Receive Date: 20200602
  Receipt Date: 20200818
  Transmission Date: 20201103
  Serious: Yes (Death, Hospitalization, Other)
  Sender: FDA-Public Use
  Company Number: IT-ROCHE-2606610

PATIENT
  Age: 50 Year
  Sex: Female
  Weight: 55 kg

DRUGS (17)
  1. HYDROXYCHLOROQUINE [Concomitant]
     Active Substance: HYDROXYCHLOROQUINE
  2. DEXAMETHASONE. [Concomitant]
     Active Substance: DEXAMETHASONE
  3. OXYGEN. [Concomitant]
     Active Substance: OXYGEN
  4. INTERFERON BETA NOS [Concomitant]
     Active Substance: INTERFERON BETA
  5. TRIMETHOPRIM SULFAMETHOXAZOLE [Concomitant]
     Active Substance: SULFAMETHOXAZOLE\TRIMETHOPRIM
  6. NITROUS OXIDE. [Concomitant]
     Active Substance: NITROUS OXIDE
  7. GLATIRAMER ACETATE. [Concomitant]
     Active Substance: GLATIRAMER ACETATE
  8. MEROPENEM. [Concomitant]
     Active Substance: MEROPENEM
  9. CASPOFUNGIN [Concomitant]
     Active Substance: CASPOFUNGIN
  10. OZONE [Concomitant]
     Active Substance: OZONE
  11. TERIFLUNOMIDE. [Concomitant]
     Active Substance: TERIFLUNOMIDE
  12. DARUNAVIR [Concomitant]
     Active Substance: DARUNAVIR
  13. RITONAVIR. [Concomitant]
     Active Substance: RITONAVIR
  14. CEFTRIAXONE. [Concomitant]
     Active Substance: CEFTRIAXONE
  15. OCRELIZUMAB. [Suspect]
     Active Substance: OCRELIZUMAB
     Indication: SECONDARY PROGRESSIVE MULTIPLE SCLEROSIS
     Dosage: 4 CYCLES, DATE OF LAST DOSE TAKEN ON 12?FEB?2020
     Route: 042
     Dates: start: 20200201
  16. PIPERACILLIN AND TAZOBACTAM [Concomitant]
     Active Substance: PIPERACILLIN SODIUM\TAZOBACTAM SODIUM
  17. LINEZOLID. [Concomitant]
     Active Substance: LINEZOLID

REACTIONS (7)
  - Pulmonary embolism [Recovered/Resolved]
  - Cardio-respiratory arrest [Fatal]
  - Pyrexia [Unknown]
  - COVID-19 pneumonia [Fatal]
  - Syncope [Unknown]
  - Acute pulmonary oedema [Fatal]
  - Dyspnoea [Unknown]

NARRATIVE: CASE EVENT DATE: 20200317
